FAERS Safety Report 5506850-2 (Version None)
Quarter: 2007Q4

REPORT INFORMATION
  Report Type: 
  Country: None (occurrence: None)
  Receive Date: 20071105
  Receipt Date: 20071102
  Transmission Date: 20080405
  Serious: Yes (Death, Life-Threatening)
  Sender: FDA-Public Use
  Company Number: JP-SANOFI-SYNTHELABO-F01200700314

PATIENT
  Sex: Male
  Weight: 60 kg

DRUGS (3)
  1. FLUOROURACIL [Suspect]
     Dosage: 500 MG (312.5 MG/M2 IV BOLUS FOLLOWED BY 2500 MG (1562.5 MG/M2) INFUSION ON D1+2
     Route: 042
     Dates: start: 20050825, end: 20050826
  2. OXALIPLATIN [Suspect]
     Indication: COLON CANCER
     Route: 042
     Dates: start: 20050825, end: 20050825
  3. CALCIUM LEVOFOLINATE [Suspect]
     Dosage: 250 MG (156.3 MG/M2) INFUSION ON D1
     Route: 042
     Dates: start: 20050825, end: 20050825

REACTIONS (3)
  - BRONCHITIS [None]
  - CATHETER RELATED INFECTION [None]
  - LEUKOPENIA [None]
